FAERS Safety Report 6035136-5 (Version None)
Quarter: 2009Q1

REPORT INFORMATION
  Report Type: 
  Country: None (occurrence: None)
  Receive Date: 20090112
  Receipt Date: 20081231
  Transmission Date: 20090719
  Serious: No
  Sender: FDA-Public Use
  Company Number: US-B.I. PHARMACEUTICALS,INC./RIDGEFIELD-2009-BP-00039BP

PATIENT
  Sex: Male

DRUGS (22)
  1. SPIRIVA [Suspect]
     Indication: EMPHYSEMA
     Dates: start: 20081101, end: 20081230
  2. SUPPLEMENTAL OXYGEN [Concomitant]
     Indication: ATRIAL FIBRILLATION
  3. SUPPLEMENTAL OXYGEN [Concomitant]
     Indication: DYSPNOEA
  4. SUPPLEMENTAL OXYGEN [Concomitant]
     Indication: ANGINA PECTORIS
  5. SYNTHROID [Concomitant]
     Indication: HYPOTHYROIDISM
  6. DIGOXIN [Concomitant]
     Indication: ATRIAL FIBRILLATION
  7. DILTIAZEM [Concomitant]
     Indication: ANGINA PECTORIS
  8. DILTIAZEM [Concomitant]
     Indication: HYPERTENSION
  9. SEREVENT [Concomitant]
     Indication: EMPHYSEMA
  10. SINGULAIR [Concomitant]
     Indication: EMPHYSEMA
  11. ALLOPURINOL [Concomitant]
     Indication: GOUT
  12. OMEPRAZOLE [Concomitant]
     Indication: GASTROOESOPHAGEAL REFLUX DISEASE
  13. WARFARIN [Concomitant]
     Indication: ANTICOAGULANT THERAPY
  14. XANAX [Concomitant]
     Indication: ANXIETY
  15. SIMVASTATIN [Concomitant]
     Indication: BLOOD CHOLESTEROL INCREASED
  16. METFORMIN HCL [Concomitant]
     Indication: DIABETES MELLITUS
  17. MAXZIDE [Concomitant]
     Indication: DIURETIC THERAPY
  18. LISINOPRIL [Concomitant]
     Indication: HYPERTENSION
  19. TOPROL-XL [Concomitant]
     Indication: ANGINA PECTORIS
  20. NIACIN [Concomitant]
     Indication: BLOOD CHOLESTEROL INCREASED
  21. GLYBURIDE [Concomitant]
     Indication: DIABETES MELLITUS
  22. ALPHAGAN P [Concomitant]
     Indication: GLAUCOMA

REACTIONS (3)
  - ATRIAL FIBRILLATION [None]
  - DYSPNOEA [None]
  - EMPHYSEMA [None]
